FAERS Safety Report 23571390 (Version 1)
Quarter: 2024Q1

REPORT INFORMATION
  Report Type: Report from Study
  Country: US (occurrence: US)
  Receive Date: 20240227
  Receipt Date: 20240227
  Transmission Date: 20240410
  Serious: Yes (Other)
  Sender: FDA-Public Use
  Company Number: US-PFIZER INC-202400047660

PATIENT
  Age: 85 Year
  Sex: Male

DRUGS (2)
  1. MEKTOVI [Suspect]
     Active Substance: BINIMETINIB
     Dosage: 45MG PO (ORAL) BID (TWICE A DAY)
     Route: 048
     Dates: start: 20240209
  2. BRAFTOVI [Suspect]
     Active Substance: ENCORAFENIB
     Dosage: 450MG PO (ORAL) DAILY
     Route: 048
     Dates: start: 20240120

REACTIONS (2)
  - Retinal oedema [Unknown]
  - Vision blurred [Not Recovered/Not Resolved]

NARRATIVE: CASE EVENT DATE: 20240213
